FAERS Safety Report 7005122-7 (Version None)
Quarter: 2010Q3

REPORT INFORMATION
  Report Type: 
  Country: None (occurrence: None)
  Receive Date: 20100921
  Receipt Date: 20100910
  Transmission Date: 20110219
  Serious: Yes (Hospitalization)
  Sender: FDA-Public Use
  Company Number: DE-WYE-G06409110

PATIENT
  Sex: Female

DRUGS (1)
  1. VENLAFAXINE HCL [Suspect]
     Indication: ANXIETY DISORDER
     Route: 048
     Dates: start: 20080101, end: 20100101

REACTIONS (1)
  - OEDEMATOUS PANCREATITIS [None]
